FAERS Safety Report 18673444 (Version 1)
Quarter: 2020Q4

REPORT INFORMATION
  Report Type: Spontaneous
  Country: US (occurrence: US)
  Receive Date: 20201229
  Receipt Date: 20201229
  Transmission Date: 20210114
  Serious: No
  Sender: FDA-Public Use
  Company Number: US-AUROBINDO-AUR-APL-2020-004034

PATIENT
  Age: 68 Year
  Sex: Male

DRUGS (3)
  1. AMOXICILLIN TABLETS USP 875 MG [Suspect]
     Active Substance: AMOXICILLIN
     Indication: EAR INFECTION
     Dosage: 2 DOSAGE FORM, DAILY
     Route: 065
     Dates: start: 20191226, end: 20200103
  2. ESOMEPRAZOLE MAGNESIUM. [Concomitant]
     Active Substance: ESOMEPRAZOLE MAGNESIUM
     Indication: EAR INFECTION
     Dosage: UNK
     Route: 065
  3. PREDNISONE. [Concomitant]
     Active Substance: PREDNISONE
     Indication: EAR INFECTION
     Dosage: UNK, TAPERED DOSE
     Route: 065

REACTIONS (1)
  - Drug ineffective [Unknown]
